FAERS Safety Report 23462583 (Version 1)
Quarter: 2024Q1

REPORT INFORMATION
  Report Type: Spontaneous
  Country: US (occurrence: None)
  Receive Date: 20240131
  Receipt Date: 20240131
  Transmission Date: 20240410
  Serious: Yes (Death)
  Sender: FDA-Public Use
  Company Number: None

PATIENT
  Sex: Male

DRUGS (9)
  1. DIPHENHYDRAMINE [Suspect]
     Active Substance: DIPHENHYDRAMINE
     Indication: Rectal cancer
     Dosage: FREQUENCY : AS DIRECTED;?
     Route: 042
     Dates: start: 202311
  2. IRINOTECAN HYDROCHLORIDE [Suspect]
     Active Substance: IRINOTECAN HYDROCHLORIDE
     Indication: Rectal cancer
     Dosage: FREQUENCY : AS DIRECTED;?
     Route: 042
     Dates: start: 202311
  3. CAMPTOSAR SDV [Concomitant]
  4. LEUCOVORIN CALC SDV [Concomitant]
  5. DEXAMETHASONE MDV [Concomitant]
  6. ERBITUX SDV [Concomitant]
  7. ONDANSETRON HCL SDV [Concomitant]
  8. ERBITUX SDV (100ML/VL) [Concomitant]
  9. FAMOTIDINE SDV (2ML/VL) [Concomitant]

REACTIONS (1)
  - Death [None]
